FAERS Safety Report 5248678-7 (Version None)
Quarter: 2007Q1

REPORT INFORMATION
  Report Type: 
  Country: None (occurrence: None)
  Receive Date: 20070226
  Receipt Date: 20070226
  Transmission Date: 20070707
  Serious: Yes (Hospitalization)
  Sender: FDA-Public Use
  Company Number: None

PATIENT
  Sex: Male
  Weight: 90.1 kg

DRUGS (3)
  1. NAPROXEN [Suspect]
     Indication: ARTHRALGIA
     Dosage: ABOUT 9 TABLETS / DAY FOR BOTH MEDS ORALLY
     Route: 048
  2. IBUPROFEN [Suspect]
     Indication: ARTHRALGIA
     Dosage: ABOUT 9 TABLETS/DAY FOR BOTH MEDS ORALLY
     Route: 048
  3. ALCOHOL USE [Suspect]
     Dosage: ALCOHOL BINGE SEVERAL TIMES/WK ORALLY
     Route: 048

REACTIONS (4)
  - ALCOHOLISM [None]
  - HAEMATOCRIT DECREASED [None]
  - HAEMOGLOBIN DECREASED [None]
  - UPPER GASTROINTESTINAL HAEMORRHAGE [None]
